FAERS Safety Report 19695470 (Version 1)
Quarter: 2021Q3

REPORT INFORMATION
  Report Type: Spontaneous
  Country: ES (occurrence: ES)
  Receive Date: 20210813
  Receipt Date: 20210813
  Transmission Date: 20211014
  Serious: Yes (Life-Threatening, Other)
  Sender: FDA-Public Use
  Company Number: ES-AUROBINDO-AUR-APL-2021-034274

PATIENT
  Age: 26 Year
  Sex: Male

DRUGS (1)
  1. AMOXICILLIN. [Suspect]
     Active Substance: AMOXICILLIN
     Indication: DENTAL DISORDER PROPHYLAXIS
     Dosage: 1 GRAM, 3 TIMES A DAY
     Route: 048
     Dates: start: 202005, end: 202005

REACTIONS (3)
  - Transaminases increased [Recovered/Resolved]
  - Drug hypersensitivity [Recovered/Resolved]
  - Drug reaction with eosinophilia and systemic symptoms [Recovered/Resolved]

NARRATIVE: CASE EVENT DATE: 202005
